FAERS Safety Report 9370513 (Version 1)
Quarter: 2013Q2

REPORT INFORMATION
  Report Type: Spontaneous
  Country: ES (occurrence: ES)
  Receive Date: 20130626
  Receipt Date: 20130626
  Transmission Date: 20140414
  Serious: Yes (Hospitalization)
  Sender: FDA-Public Use
  Company Number: ES-UCBSA-089489

PATIENT
  Age: 63 Year
  Sex: Female

DRUGS (15)
  1. ENALAPRIL [Suspect]
     Route: 048
     Dates: start: 20100610
  2. OMEPRAZOLE [Suspect]
     Route: 048
     Dates: start: 2012
  3. SEPTRIN [Suspect]
     Route: 048
     Dates: start: 2012
  4. CICLOSPORINE [Suspect]
     Route: 048
     Dates: start: 2012
  5. BUPRENORPHINE [Suspect]
     Route: 062
     Dates: start: 2012
  6. GABAPENTIN [Suspect]
     Route: 048
     Dates: start: 2012
  7. MYCOPHENOLIC ACID [Suspect]
     Dosage: DOSE: 600 MG/ 2 DAYS
     Route: 048
     Dates: start: 2012
  8. VALGANCICLOVIR [Suspect]
     Route: 048
     Dates: start: 2012
  9. COLISTIMETHATE [Suspect]
     Route: 055
     Dates: start: 20130301
  10. ABELCET [Suspect]
     Dosage: DOSE: 50 MG /48 HOURS
     Dates: start: 201212
  11. ABSTRAL [Suspect]
     Route: 060
     Dates: start: 2012
  12. ENANTYUM [Suspect]
     Dosage: DOSE: 25 MG/3 DAYS
     Route: 048
     Dates: start: 2012
  13. BROMACEPAM [Concomitant]
     Route: 048
  14. PREDNISONE [Concomitant]
     Route: 048
  15. TACROLIMUS [Concomitant]

REACTIONS (3)
  - Neurotoxicity [Recovered/Resolved]
  - Paraesthesia [Recovered/Resolved]
  - Sciatica [Recovered/Resolved]
